FAERS Safety Report 19933237 (Version 1)
Quarter: 2021Q4

REPORT INFORMATION
  Report Type: Other
  Country: IT (occurrence: IT)
  Receive Date: 20211008
  Receipt Date: 20211008
  Transmission Date: 20220303
  Serious: Yes (Hospitalization, Other)
  Sender: FDA-Public Use
  Company Number: IT-ROCHE-2869635

PATIENT

DRUGS (3)
  1. OCRELIZUMAB [Suspect]
     Active Substance: OCRELIZUMAB
     Indication: Primary progressive multiple sclerosis
     Route: 065
  2. OCRELIZUMAB [Suspect]
     Active Substance: OCRELIZUMAB
     Indication: Relapsing-remitting multiple sclerosis
  3. OCRELIZUMAB [Suspect]
     Active Substance: OCRELIZUMAB
     Indication: Secondary progressive multiple sclerosis

REACTIONS (13)
  - Pneumonia [Unknown]
  - COVID-19 [Recovered/Resolved]
  - Breast cancer [Unknown]
  - Cervix carcinoma [Unknown]
  - Lymphoma [Unknown]
  - Acute myeloid leukaemia [Unknown]
  - Upper respiratory tract infection [Unknown]
  - Urinary tract infection [Unknown]
  - Herpes simplex reactivation [Unknown]
  - Varicella zoster virus infection [Unknown]
  - Hypogammaglobulinaemia [Unknown]
  - Hypogammaglobulinaemia [Unknown]
  - Hypogammaglobulinaemia [Unknown]
